FAERS Safety Report 15000521 (Version 1)
Quarter: 2018Q2

REPORT INFORMATION
  Report Type: Spontaneous
  Country: DE (occurrence: DE)
  Receive Date: 20180612
  Receipt Date: 20180612
  Transmission Date: 20180711
  Serious: Yes (Hospitalization)
  Sender: FDA-Public Use
  Company Number: DE-TEVA-2018-DE-905260

PATIENT
  Age: 77 Year
  Sex: Female
  Weight: 78 kg

DRUGS (8)
  1. RISPERIDON [Concomitant]
     Active Substance: RISPERIDONE
     Dosage: 0-0-0.5-0,
     Route: 048
  2. OMEP 40 MG [Concomitant]
     Active Substance: OMEPRAZOLE
     Route: 048
  3. ASS 100 [Concomitant]
     Active Substance: ASPIRIN
     Dosage: 100 MILLIGRAM DAILY;
     Route: 048
  4. VESIKUR [Concomitant]
     Active Substance: SOLIFENACIN SUCCINATE
     Dosage: 10 MILLIGRAM DAILY;
     Route: 048
  5. RAMIPRIL. [Concomitant]
     Active Substance: RAMIPRIL
     Dosage: 0.5-0-0-0,
     Route: 048
  6. METFORMIN [Concomitant]
     Active Substance: METFORMIN HYDROCHLORIDE
     Dosage: 500 MILLIGRAM DAILY;
     Route: 048
  7. GLIMEPIRIDE. [Suspect]
     Active Substance: GLIMEPIRIDE
     Dosage: 2 MILLIGRAM DAILY;
     Route: 048
  8. SIMVASTATIN. [Concomitant]
     Active Substance: SIMVASTATIN
     Dosage: 0-0-0.5-0,
     Route: 048

REACTIONS (5)
  - Diarrhoea [Unknown]
  - General physical health deterioration [Unknown]
  - Disorientation [Unknown]
  - Hypoglycaemia [Unknown]
  - Fall [Unknown]
